FAERS Safety Report 9641362 (Version 1)
Quarter: 2013Q4

REPORT INFORMATION
  Report Type: Spontaneous
  Country: US (occurrence: None)
  Receive Date: 20131022
  Receipt Date: 20131022
  Transmission Date: 20140711
  Serious: Yes (Other)
  Sender: FDA-Public Use
  Company Number: None

PATIENT
  Age: 33 Year
  Sex: Male

DRUGS (9)
  1. TRAZODONE [Suspect]
     Indication: INSOMNIA
     Route: 048
     Dates: start: 20131016, end: 20131017
  2. FLUOXETINE [Concomitant]
  3. NICORELIEF [Concomitant]
  4. DIPHENHYDRAMINE [Concomitant]
  5. VITAMIN B [Concomitant]
  6. IBUPROFEN [Concomitant]
  7. FOLIC ACID [Concomitant]
  8. MULTIVITAMIN DAILY [Concomitant]
  9. HYDROXYZINE [Concomitant]

REACTIONS (1)
  - Priapism [None]
